FAERS Safety Report 14715697 (Version 6)
Quarter: 2019Q2

REPORT INFORMATION
  Report Type: Report from Study
  Country: US (occurrence: US)
  Receive Date: 20180404
  Receipt Date: 20190408
  Transmission Date: 20190711
  Serious: Yes (Hospitalization)
  Sender: FDA-Public Use
  Company Number: US-ACTELION-A-NJ2018-169057

PATIENT
  Age: 75 Year
  Sex: Male
  Weight: 90.7 kg

DRUGS (3)
  1. OPSUMIT [Suspect]
     Active Substance: MACITENTAN
     Indication: PULMONARY ARTERIAL HYPERTENSION
     Dosage: 10 MG, QD
     Route: 048
     Dates: end: 20190319
  2. ADEMPAS [Concomitant]
     Active Substance: RIOCIGUAT
  3. ORENITRAM [Concomitant]
     Active Substance: TREPROSTINIL

REACTIONS (10)
  - Influenza [Unknown]
  - Panic attack [Unknown]
  - Pneumonia [Unknown]
  - Hospice care [Unknown]
  - Cardiac infection [Unknown]
  - Lung infection [Unknown]
  - Hospitalisation [Unknown]
  - Dyspnoea [Unknown]
  - Anxiety [Unknown]
  - Epistaxis [Unknown]

NARRATIVE: CASE EVENT DATE: 20180305
